FAERS Safety Report 16361840 (Version 1)
Quarter: 2019Q2

REPORT INFORMATION
  Report Type: Spontaneous
  Country: US (occurrence: US)
  Receive Date: 20190528
  Receipt Date: 20190528
  Transmission Date: 20190711
  Serious: No
  Sender: FDA-Public Use
  Company Number: US-PFIZER INC-2019222924

PATIENT
  Age: 77 Year
  Sex: Female
  Weight: 70.31 kg

DRUGS (1)
  1. FLECTOR [Suspect]
     Active Substance: DICLOFENAC EPOLAMINE

REACTIONS (1)
  - Therapeutic product effect incomplete [Unknown]
